FAERS Safety Report 8742370 (Version 2)
Quarter: 2012Q4

REPORT INFORMATION
  Report Type: 
  Country: TR (occurrence: TR)
  Receive Date: 20120824
  Receipt Date: 20121026
  Transmission Date: 20130627
  Serious: Yes (Hospitalization, Other)
  Sender: FDA-Public Use
  Company Number: TR-JNJFOC-20120806994

PATIENT
  Sex: Male

DRUGS (1)
  1. REMICADE [Suspect]
     Indication: CROHN^S DISEASE
     Route: 042
     Dates: start: 2008

REACTIONS (3)
  - Anal fissure [Recovered/Resolved]
  - Anal abscess [Recovered/Resolved]
  - Anal infection [Recovered/Resolved]
